FAERS Safety Report 5389687-7 (Version None)
Quarter: 2007Q3

REPORT INFORMATION
  Report Type: 
  Country: None (occurrence: None)
  Receive Date: 20070717
  Receipt Date: 20070704
  Transmission Date: 20080115
  Serious: Yes (Hospitalization)
  Sender: FDA-Public Use
  Company Number: ES-ELI_LILLY_AND_COMPANY-ES200707001044

PATIENT
  Age: 52 Year
  Sex: Male
  Weight: 50 kg

DRUGS (5)
  1. PEMETREXED [Suspect]
     Indication: NEOPLASM MALIGNANT
     Dosage: 500 MG/M2, UNK
     Dates: start: 20070612
  2. CISPLATIN [Suspect]
     Indication: NEOPLASM MALIGNANT
     Dosage: 75 MG/M2, UNK
     Dates: start: 20070612
  3. FOLIC ACID [Concomitant]
     Dosage: 400 UG, DAILY (1/D)
     Route: 048
     Dates: start: 20070531, end: 20070627
  4. VITAMIN B-12 [Concomitant]
     Dosage: 1000 UG, EVERY 9 WEEKS
     Route: 030
     Dates: start: 20070531, end: 20070531
  5. DEXAMETHASONE 0.5MG TAB [Concomitant]
     Dosage: 4 MG, OTHER
     Route: 048
     Dates: start: 20070611, end: 20070613

REACTIONS (1)
  - LARYNGEAL DYSPNOEA [None]
